FAERS Safety Report 5903485-4 (Version None)
Quarter: 2008Q3

REPORT INFORMATION
  Report Type: 
  Country: None (occurrence: None)
  Receive Date: 20080930
  Receipt Date: 20080919
  Transmission Date: 20090109
  Serious: Yes (Hospitalization)
  Sender: FDA-Public Use
  Company Number: PL-NOVOPROD-267890

PATIENT
  Sex: Female
  Weight: 28.5 kg

DRUGS (7)
  1. INSULATARD PENFILL HM(GE) 3.0 ML [Suspect]
     Indication: TYPE 1 DIABETES MELLITUS
     Dosage: 15 IU, QD
     Route: 058
     Dates: start: 20070809, end: 20080910
  2. INSULATARD PENFILL HM(GE) 3.0 ML [Suspect]
     Dosage: 10 IU, QD
     Route: 058
     Dates: start: 20070911, end: 20070911
  3. INSULATARD PENFILL HM(GE) 3.0 ML [Suspect]
     Dosage: 15 IU, QD
     Route: 058
     Dates: start: 20070913
  4. NOVORAPID PENFILL 3.0 ML [Suspect]
     Indication: TYPE 1 DIABETES MELLITUS
     Dosage: 14 IU, QD
     Route: 058
     Dates: start: 20070809, end: 20070812
  5. NOVORAPID PENFILL 3.0 ML [Suspect]
     Dosage: 12 IU, QD
     Route: 058
     Dates: start: 20070911, end: 20070911
  6. NOVORAPID PENFILL 3.0 ML [Suspect]
     Dosage: 15.7 IU, QD
     Route: 042
     Dates: start: 20070912, end: 20070912
  7. NOVORAPID PENFILL 3.0 ML [Suspect]
     Dosage: 14 IU, QD
     Route: 058
     Dates: start: 20070913

REACTIONS (1)
  - CONVULSION [None]
